FAERS Safety Report 25472899 (Version 1)
Quarter: 2025Q2

REPORT INFORMATION
  Report Type: Spontaneous
  Country: US (occurrence: None)
  Receive Date: 20250624
  Receipt Date: 20250624
  Transmission Date: 20250716
  Serious: No
  Sender: INCYTE
  Company Number: US-INCYTE CORPORATION-2025IN006559

PATIENT
  Age: 74 Year

DRUGS (1)
  1. JAKAFI [Suspect]
     Active Substance: RUXOLITINIB
     Indication: Polycythaemia vera
     Dosage: 10 MILLIGRAM, BID

REACTIONS (5)
  - Back pain [Unknown]
  - Gait disturbance [Unknown]
  - Decreased activity [Unknown]
  - Arthritis [Unknown]
  - Dyspnoea [Unknown]
